FAERS Safety Report 17912655 (Version 4)
Quarter: 2021Q2

REPORT INFORMATION
  Report Type: Spontaneous
  Country: US (occurrence: US)
  Receive Date: 20200618
  Receipt Date: 20210628
  Transmission Date: 20210717
  Serious: Yes (Death, Other)
  Sender: FDA-Public Use
  Company Number: US-GILEAD-2020-0473539

PATIENT
  Age: 59 Year
  Sex: Female
  Weight: 104.32 kg

DRUGS (96)
  1. LEVOTHYROXINE. [Concomitant]
     Active Substance: LEVOTHYROXINE
  2. MOTRIN [NAPROXEN] [Concomitant]
     Active Substance: NAPROXEN
  3. AMLODIPINE [Concomitant]
     Active Substance: AMLODIPINE BESYLATE
  4. PAXIL [PIROXICAM] [Concomitant]
     Active Substance: PIROXICAM
  5. SENNA [Concomitant]
     Active Substance: SENNA LEAF\SENNOSIDES\SENNOSIDES A AND B
  6. LANTUS XR [Concomitant]
     Active Substance: INSULIN GLARGINE
  7. SYMBICORT [Concomitant]
     Active Substance: BUDESONIDE\FORMOTEROL FUMARATE DIHYDRATE
  8. SPIRIVA [Concomitant]
     Active Substance: TIOTROPIUM BROMIDE MONOHYDRATE
  9. BACTRIM [Concomitant]
     Active Substance: SULFAMETHOXAZOLE\TRIMETHOPRIM
  10. LYRICA [Concomitant]
     Active Substance: PREGABALIN
  11. DIPHENOXYLATE [Concomitant]
     Active Substance: DIPHENOXYLATE
  12. PROMETHAZINE [Concomitant]
     Active Substance: PROMETHAZINE HYDROCHLORIDE
  13. GABAPENTIN. [Concomitant]
     Active Substance: GABAPENTIN
  14. INTELENCE [Concomitant]
     Active Substance: ETRAVIRINE
  15. ZETIA [Concomitant]
     Active Substance: EZETIMIBE
  16. DOXYCYCLINE MONOHYDRATE [Concomitant]
     Active Substance: DOXYCYCLINE
  17. OXYCODONE [Concomitant]
     Active Substance: OXYCODONE
  18. FENTANYL. [Concomitant]
     Active Substance: FENTANYL
  19. LIDOCAINE. [Concomitant]
     Active Substance: LIDOCAINE
  20. NITROSTAT [Concomitant]
     Active Substance: NITROGLYCERIN
  21. MORTIN [Concomitant]
     Active Substance: SULFAMETHOXAZOLE\TRIMETHOPRIM
  22. TRUVADA [Suspect]
     Active Substance: EMTRICITABINE\TENOFOVIR DISOPROXIL FUMARATE
     Indication: HIV INFECTION
     Dosage: UNK
     Route: 048
     Dates: start: 2005, end: 2014
  23. DIAZEPAM. [Concomitant]
     Active Substance: DIAZEPAM
  24. FLONASE [MOMETASONE FUROATE] [Concomitant]
     Active Substance: MOMETASONE FUROATE
  25. LASIX [Concomitant]
     Active Substance: FUROSEMIDE
  26. TYLENOL WITH CODEINE [Concomitant]
     Active Substance: ACETAMINOPHEN\CODEINE PHOSPHATE
  27. ZANTAC [Concomitant]
     Active Substance: RANITIDINE HYDROCHLORIDE
  28. VENOFER [Concomitant]
     Active Substance: IRON SUCROSE
  29. EPIVIR [Concomitant]
     Active Substance: LAMIVUDINE
  30. CLONIDINE. [Concomitant]
     Active Substance: CLONIDINE
  31. VICODIN [Concomitant]
     Active Substance: ACETAMINOPHEN\HYDROCODONE BITARTRATE
  32. VENTOLIN [Concomitant]
     Active Substance: ALBUTEROL SULFATE
  33. NYSTATIN. [Concomitant]
     Active Substance: NYSTATIN
  34. HECTOROL [Concomitant]
     Active Substance: DOXERCALCIFEROL
  35. VITAMIN D NOS [Concomitant]
     Active Substance: VITAMIN D NOS
  36. ZOLOFT [Concomitant]
     Active Substance: SERTRALINE HYDROCHLORIDE
  37. VALIUM [Concomitant]
     Active Substance: DIAZEPAM
  38. ACYCLOVIR [ACICLOVIR] [Concomitant]
     Active Substance: ACYCLOVIR
  39. EPOGEN [Concomitant]
     Active Substance: ERYTHROPOIETIN
  40. VIDEX EC [Concomitant]
     Active Substance: DIDANOSINE
  41. VIRACEPT [Concomitant]
     Active Substance: NELFINAVIR MESYLATE
  42. VIRAMUNE [Concomitant]
     Active Substance: NEVIRAPINE
  43. ZERIT [Concomitant]
     Active Substance: STAVUDINE
  44. BENICAR HCT [Concomitant]
     Active Substance: HYDROCHLOROTHIAZIDE\OLMESARTAN MEDOXOMIL
  45. CARVEDILOL. [Concomitant]
     Active Substance: CARVEDILOL
  46. LOPID [Concomitant]
     Active Substance: GEMFIBROZIL
  47. LEVEMIR [Concomitant]
     Active Substance: INSULIN DETEMIR
  48. DIBUCAINE HYDROCHLORIDE [Concomitant]
     Active Substance: DIBUCAINE HYDROCHLORIDE
  49. LOPERAMIDE [Concomitant]
     Active Substance: LOPERAMIDE
  50. MAXALT [Concomitant]
     Active Substance: RIZATRIPTAN BENZOATE
  51. KALETRA [Concomitant]
     Active Substance: LOPINAVIR\RITONAVIR
  52. REYATAZ [Concomitant]
     Active Substance: ATAZANAVIR SULFATE
  53. LOSARTAN. [Concomitant]
     Active Substance: LOSARTAN
  54. LIPITOR [Concomitant]
     Active Substance: ATORVASTATIN CALCIUM
  55. FENOFIBRATE. [Concomitant]
     Active Substance: FENOFIBRATE
  56. AZITHROMYCIN ANHYDROUS. [Concomitant]
     Active Substance: AZITHROMYCIN ANHYDROUS
  57. ZITHROMAX [Concomitant]
     Active Substance: AZITHROMYCIN DIHYDRATE
  58. SILVER SULFADIAZINE. [Concomitant]
     Active Substance: SILVER SULFADIAZINE
  59. NOVOLOG [Concomitant]
     Active Substance: INSULIN ASPART
  60. GLUCOPHAGE [Concomitant]
     Active Substance: METFORMIN HYDROCHLORIDE
  61. SEROQUEL [Concomitant]
     Active Substance: QUETIAPINE FUMARATE
  62. DIPHENHYDRAMINE. [Concomitant]
     Active Substance: DIPHENHYDRAMINE
  63. DEXTROSE. [Concomitant]
     Active Substance: DEXTROSE
  64. FOLIC ACID. [Concomitant]
     Active Substance: FOLIC ACID
  65. CLARIN [LORATADINE] [Concomitant]
  66. MONTELUKAST [MONTELUKAST SODIUM] [Concomitant]
     Active Substance: MONTELUKAST SODIUM
  67. VIREAD [Suspect]
     Active Substance: TENOFOVIR DISOPROXIL FUMARATE
     Indication: HIV INFECTION
     Dosage: UNK
     Route: 048
     Dates: start: 2001, end: 20080122
  68. TRUVADA [Suspect]
     Active Substance: EMTRICITABINE\TENOFOVIR DISOPROXIL FUMARATE
     Dosage: UNK
     Route: 048
     Dates: start: 20080513, end: 20110811
  69. PREDNISONE. [Concomitant]
     Active Substance: PREDNISONE
  70. TRIAMCINOLONE [Concomitant]
     Active Substance: TRIAMCINOLONE
  71. KETOCONAZOLE. [Concomitant]
     Active Substance: KETOCONAZOLE
  72. ATOVAQUONE. [Concomitant]
     Active Substance: ATOVAQUONE
  73. VIREAD [Suspect]
     Active Substance: TENOFOVIR DISOPROXIL FUMARATE
     Dosage: UNK
     Route: 048
     Dates: start: 20040727, end: 200805
  74. INSULIN [Concomitant]
     Active Substance: INSULIN NOS
  75. HEPARIN [Concomitant]
     Active Substance: HEPARIN SODIUM
  76. JULUCA [Concomitant]
     Active Substance: DOLUTEGRAVIR SODIUM\RILPIVIRINE HYDROCHLORIDE
  77. AUGMENTINE [AMOXICILLIN;CLAVULANIC ACID] [Concomitant]
     Active Substance: AMOXICILLIN\CLAVULANIC ACID
  78. LISINOPRIL. [Concomitant]
     Active Substance: LISINOPRIL
  79. CLOBETASOL PROPIONATE. [Concomitant]
     Active Substance: CLOBETASOL PROPIONATE
  80. HYDROCHLOROTHIAZIDE. [Concomitant]
     Active Substance: HYDROCHLOROTHIAZIDE
  81. MEGESTROL [Concomitant]
     Active Substance: MEGESTROL
  82. AMOXICILLIN. [Concomitant]
     Active Substance: AMOXICILLIN
  83. ASPIRIN [ACETYLSALICYLIC ACID] [Concomitant]
     Active Substance: ASPIRIN
  84. ARANESP [Concomitant]
     Active Substance: DARBEPOETIN ALFA
  85. NORVIR [Concomitant]
     Active Substance: RITONAVIR
  86. FUROSEMIDE. [Concomitant]
     Active Substance: FUROSEMIDE
  87. DIGOXIN. [Concomitant]
     Active Substance: DIGOXIN
  88. DICLOFENAC [Concomitant]
     Active Substance: DICLOFENAC
  89. EFFIENT [Concomitant]
     Active Substance: PRASUGREL HYDROCHLORIDE
  90. COLACE [Concomitant]
     Active Substance: DOCUSATE SODIUM
  91. SULFAMETHOXAZOLE [Concomitant]
     Active Substance: SULFAMETHOXAZOLE
  92. PROCARDIA [Concomitant]
     Active Substance: NIFEDIPINE
  93. HYDROXYCHLOROQUIN [Concomitant]
     Active Substance: HYDROXYCHLOROQUINE SULFATE
  94. CORTISONE [Concomitant]
     Active Substance: CORTISONE
  95. MIDODRINE [Concomitant]
     Active Substance: MIDODRINE
  96. KLOR?CON [Concomitant]
     Active Substance: POTASSIUM CHLORIDE

REACTIONS (10)
  - Renal failure [Recovered/Resolved]
  - Chronic kidney disease [Recovered/Resolved]
  - Death [Fatal]
  - Fibula fracture [Recovered/Resolved]
  - Bone density decreased [Unknown]
  - End stage renal disease [Recovered/Resolved]
  - Emotional distress [Unknown]
  - Pain [Unknown]
  - Ankle fracture [Unknown]
  - Tooth loss [Recovered/Resolved]

NARRATIVE: CASE EVENT DATE: 2006
